FAERS Safety Report 9096083 (Version 3)
Quarter: 2013Q2

REPORT INFORMATION
  Report Type: Spontaneous
  Country: US (occurrence: US)
  Receive Date: 20130207
  Receipt Date: 20130604
  Transmission Date: 20140414
  Serious: Yes (Hospitalization, Other)
  Sender: FDA-Public Use
  Company Number: US-BAYER-2013-016723

PATIENT
  Age: 28 Year
  Sex: Female
  Weight: 72.1 kg

DRUGS (2)
  1. MIRENA [Suspect]
     Indication: CONTRACEPTION
     Dosage: 20 MCG/24HR, CONT
     Route: 015
     Dates: start: 20110322, end: 20130328
  2. PRENATAL VITAMINS [Concomitant]

REACTIONS (9)
  - Vaginal haemorrhage [None]
  - Pregnancy with contraceptive device [Recovered/Resolved]
  - Umbilical cord prolapse [Recovered/Resolved]
  - Uterine perforation [Recovered/Resolved]
  - Drug ineffective [None]
  - Amenorrhoea [None]
  - Nausea [Recovered/Resolved]
  - Vomiting [Recovered/Resolved]
  - Abdominal pain [Recovered/Resolved]
